FAERS Safety Report 21299765 (Version 1)
Quarter: 2022Q3

REPORT INFORMATION
  Report Type: Spontaneous
  Country: US (occurrence: US)
  Receive Date: 20220906
  Receipt Date: 20220906
  Transmission Date: 20221026
  Serious: No
  Sender: FDA-Public Use
  Company Number: US-ELI_LILLY_AND_COMPANY-US202208009079

PATIENT
  Sex: Male

DRUGS (2)
  1. MOUNJARO [Suspect]
     Active Substance: TIRZEPATIDE
     Indication: Glycosylated haemoglobin increased
     Dosage: 10 MG, UNKNOWN
     Route: 065
  2. MOUNJARO [Suspect]
     Active Substance: TIRZEPATIDE
     Indication: Weight decreased

REACTIONS (4)
  - Stress [Unknown]
  - Weight increased [Unknown]
  - Product prescribing error [Unknown]
  - Incorrect dose administered [Unknown]
